FAERS Safety Report 13002212 (Version 4)
Quarter: 2017Q1

REPORT INFORMATION
  Report Type: Spontaneous
  Country: US (occurrence: US)
  Receive Date: 20161206
  Receipt Date: 20170207
  Transmission Date: 20170428
  Serious: No
  Sender: FDA-Public Use
  Company Number: US-GLAXOSMITHKLINE-US2016179151

PATIENT
  Sex: Female

DRUGS (1)
  1. FLOVENT [Suspect]
     Active Substance: FLUTICASONE PROPIONATE
     Indication: OESOPHAGITIS
     Dosage: UNK
     Route: 048

REACTIONS (5)
  - Product cleaning inadequate [Recovered/Resolved]
  - Off label use [Unknown]
  - Product quality issue [Unknown]
  - Intentional product use issue [Unknown]
  - Drug dose omission [Not Recovered/Not Resolved]
